FAERS Safety Report 5196618-1 (Version None)
Quarter: 2007Q1

REPORT INFORMATION
  Report Type: 
  Country: None (occurrence: None)
  Receive Date: 20070103
  Receipt Date: 20061227
  Transmission Date: 20070707
  Serious: Yes (Hospitalization)
  Sender: FDA-Public Use
  Company Number: PHBS2006JP19068

PATIENT
  Age: 89 Year
  Sex: Female

DRUGS (2)
  1. DIOVAN [Suspect]
     Indication: HYPERTENSION
     Route: 048
     Dates: end: 20061026
  2. DIOVAN [Suspect]
     Dosage: 40 MG, TID
     Route: 048
     Dates: start: 20061027, end: 20061115

REACTIONS (10)
  - BLOOD ALDOSTERONE DECREASED [None]
  - BLOOD BICARBONATE INCREASED [None]
  - BLOOD POTASSIUM DECREASED [None]
  - BLOOD SODIUM DECREASED [None]
  - CEREBRAL INFARCTION [None]
  - HYPERTENSION [None]
  - HYPERVENTILATION [None]
  - PCO2 INCREASED [None]
  - RENAL TUBULAR ACIDOSIS [None]
  - RENIN DECREASED [None]
